FAERS Safety Report 11742871 (Version 2)
Quarter: 2016Q1

REPORT INFORMATION
  Report Type: Spontaneous
  Country: US (occurrence: US)
  Receive Date: 20151116
  Receipt Date: 20160120
  Transmission Date: 20160525
  Serious: No
  Sender: FDA-Public Use
  Company Number: PHEH2015US023410

PATIENT
  Age: 52 Year
  Sex: Male

DRUGS (1)
  1. VOTRIENT [Suspect]
     Active Substance: PAZOPANIB HYDROCHLORIDE
     Indication: MALIGNANT URINARY TRACT NEOPLASM
     Dosage: 600 MG, QD
     Route: 048
     Dates: start: 20150903

REACTIONS (4)
  - Photosensitivity reaction [Unknown]
  - Blepharospasm [Unknown]
  - Confusional state [Unknown]
  - Pruritus [Unknown]

NARRATIVE: CASE EVENT DATE: 20160111
